FAERS Safety Report 21018362 (Version 1)
Quarter: 2022Q2

REPORT INFORMATION
  Report Type: Spontaneous
  Country: US (occurrence: None)
  Receive Date: 20220628
  Receipt Date: 20220628
  Transmission Date: 20220721
  Serious: Yes (Hospitalization)
  Sender: FDA-Public Use
  Company Number: None

PATIENT
  Sex: Female

DRUGS (2)
  1. TEMOZOLOMIDE [Suspect]
     Active Substance: TEMOZOLOMIDE
     Indication: Colon cancer
     Dosage: OTHER FREQUENCY : QD DAYS 10-14;?
     Route: 048
     Dates: start: 20211122
  2. TEMOZOLOMIDE [Suspect]
     Active Substance: TEMOZOLOMIDE
     Indication: Colon cancer
     Dosage: OTHER FREQUENCY : QD DAYS 10-14;?
     Route: 048
     Dates: start: 20211122

REACTIONS (1)
  - Haemoglobin decreased [None]
